FAERS Safety Report 6604718-1 (Version None)
Quarter: 2010Q1

REPORT INFORMATION
  Report Type: 
  Country: None (occurrence: None)
  Receive Date: 20100226
  Receipt Date: 20091214
  Transmission Date: 20100710
  Serious: No
  Sender: FDA-Public Use
  Company Number: US-BRISTOL-MYERS SQUIBB COMPANY-14840391

PATIENT
  Age: 66 Year
  Sex: Female

DRUGS (12)
  1. ONGLYZA [Suspect]
     Indication: TYPE 2 DIABETES MELLITUS
     Route: 048
     Dates: start: 20090918
  2. GLUCOVANCE [Concomitant]
     Dosage: 1DOSAGEFORM=1.25/250
     Route: 048
  3. AMLODIPINE [Concomitant]
     Route: 048
  4. RAMIPRIL [Concomitant]
     Route: 048
  5. METOPROLOL TARTRATE [Concomitant]
     Route: 048
  6. ALPRAZOLAM [Concomitant]
  7. LEVOTHYROXINE SODIUM [Concomitant]
     Route: 048
  8. TEKTURNA [Concomitant]
     Route: 048
  9. AVAPRO [Concomitant]
     Route: 048
  10. FUROSEMIDE [Concomitant]
     Route: 048
  11. VITAMIN D [Concomitant]
     Route: 048
  12. CELEBREX [Concomitant]
     Route: 048
     Dates: start: 20070101

REACTIONS (1)
  - RASH ERYTHEMATOUS [None]
